FAERS Safety Report 15478258 (Version 1)
Quarter: 2018Q4

REPORT INFORMATION
  Report Type: Spontaneous
  Country: US (occurrence: US)
  Receive Date: 20181002
  Receipt Date: 20181002
  Transmission Date: 20190205
  Serious: No
  Sender: FDA-Public Use
  Company Number: None

PATIENT
  Age: 40 Year
  Sex: Male
  Weight: 90 kg

DRUGS (5)
  1. ACCORD CLONAZAPAM [Suspect]
     Active Substance: CLONAZEPAM
     Indication: ANXIETY
     Dosage: ?          QUANTITY:1 DF DOSAGE FORM;?
     Route: 048
     Dates: end: 20181002
  2. ACCORD CLONAZAPAM [Suspect]
     Active Substance: CLONAZEPAM
     Indication: TRIGEMINAL NEURALGIA
     Dosage: ?          QUANTITY:1 DF DOSAGE FORM;?
     Route: 048
     Dates: end: 20181002
  3. OMEPRAZOLE. [Concomitant]
     Active Substance: OMEPRAZOLE
  4. AMITRIPTALINE [Concomitant]
     Active Substance: AMITRIPTYLINE
  5. ACCORD CLONAZAPAM [Suspect]
     Active Substance: CLONAZEPAM
     Indication: TINNITUS
     Dosage: ?          QUANTITY:1 DF DOSAGE FORM;?
     Route: 048
     Dates: end: 20181002

REACTIONS (4)
  - Headache [None]
  - Product complaint [None]
  - Nausea [None]
  - Therapeutic response decreased [None]

NARRATIVE: CASE EVENT DATE: 20181002
